FAERS Safety Report 13922128 (Version 3)
Quarter: 2017Q3

REPORT INFORMATION
  Report Type: Spontaneous
  Country: CA (occurrence: CA)
  Receive Date: 20170830
  Receipt Date: 20170911
  Transmission Date: 20171127
  Serious: No
  Sender: FDA-Public Use
  Company Number: CA-PFIZER INC-2017370746

PATIENT
  Sex: Female

DRUGS (2)
  1. AREDIA [Suspect]
     Active Substance: PAMIDRONATE DISODIUM
     Dosage: UNK
     Dates: start: 201602, end: 201706
  2. METHOTREXATE SODIUM. [Suspect]
     Active Substance: METHOTREXATE SODIUM
     Indication: SAPHO SYNDROME
     Dosage: UNK

REACTIONS (1)
  - Drug ineffective for unapproved indication [Unknown]
